FAERS Safety Report 7835823-X (Version None)
Quarter: 2011Q4

REPORT INFORMATION
  Report Type: 
  Country: None (occurrence: None)
  Receive Date: 20111024
  Receipt Date: 20111014
  Transmission Date: 20120403
  Serious: Yes (Death, Hospitalization, Other)
  Sender: FDA-Public Use
  Company Number: US-ACTELION-A-US2011-51594

PATIENT

DRUGS (3)
  1. TRACLEER [Suspect]
     Indication: PULMONARY ARTERIAL HYPERTENSION
     Dosage: 125 MG, BID
     Route: 048
     Dates: start: 20070104
  2. REVATIO [Concomitant]
  3. OXYGEN [Concomitant]

REACTIONS (3)
  - RIGHT VENTRICULAR FAILURE [None]
  - FLUID RETENTION [None]
  - PULMONARY ARTERIAL HYPERTENSION [None]
